FAERS Safety Report 23507832 (Version 3)
Quarter: 2024Q2

REPORT INFORMATION
  Report Type: Spontaneous
  Country: FR (occurrence: FR)
  Receive Date: 20240209
  Receipt Date: 20240605
  Transmission Date: 20240716
  Serious: Yes (Other)
  Sender: FDA-Public Use
  Company Number: FR-UCBSA-2024005981

PATIENT
  Age: 9 Year
  Sex: Female
  Weight: 22 kg

DRUGS (6)
  1. FINTEPLA [Suspect]
     Active Substance: FENFLURAMINE
     Indication: Lennox-Gastaut syndrome
     Dosage: 0.2 MILLIGRAM/KILOGRAM
     Dates: start: 202311
  2. KEPPRA [Concomitant]
     Active Substance: LEVETIRACETAM
     Indication: Product used for unknown indication
     Dosage: 40 MILLIGRAM/KILOGRAM
     Dates: start: 201511
  3. RIVOTRIL [Concomitant]
     Active Substance: CLONAZEPAM
     Indication: Product used for unknown indication
     Dosage: UNK
     Dates: start: 201511
  4. LAMICTAL [Concomitant]
     Active Substance: LAMOTRIGINE
     Indication: Product used for unknown indication
     Dosage: 6.5 MILLIGRAM/KILOGRAM
     Dates: start: 2017
  5. ZONEGRAN [Concomitant]
     Active Substance: ZONISAMIDE
     Indication: Product used for unknown indication
     Dosage: 5 MILLIGRAM/KILOGRAM
     Dates: start: 2020
  6. CANNABIDIOL [Concomitant]
     Active Substance: CANNABIDIOL
     Indication: Product used for unknown indication
     Dosage: 20 MILLIGRAM/KILOGRAM
     Dates: start: 2021

REACTIONS (2)
  - Pulmonary arterial hypertension [Unknown]
  - Anomalous pulmonary venous connection [Unknown]

NARRATIVE: CASE EVENT DATE: 20240131
